FAERS Safety Report 7133423-0 (Version None)
Quarter: 2010Q4

REPORT INFORMATION
  Report Type: 
  Country: None (occurrence: None)
  Receive Date: 20101202
  Receipt Date: 20101119
  Transmission Date: 20110411
  Serious: Yes (Hospitalization)
  Sender: FDA-Public Use
  Company Number: GB-WATSON-2010-15389

PATIENT
  Age: 9 Year
  Sex: Male

DRUGS (10)
  1. PREDNISOLONE [Suspect]
     Indication: PROPHYLAXIS AGAINST TRANSPLANT REJECTION
     Dosage: UNK
     Route: 065
  2. SULFAMETHOXAZOLE AND TRIMETHOPRIM [Suspect]
     Indication: PROPHYLAXIS
     Dosage: UNK
     Route: 065
  3. ZIDOVUDINE [Suspect]
     Indication: PROPHYLAXIS
     Dosage: UNK
  4. DIDANOSINE [Suspect]
     Indication: PROPHYLAXIS
     Dosage: UNK
  5. NELFINAVIR [Suspect]
     Indication: PROPHYLAXIS
     Dosage: UNK
  6. LAMIVUDINE [Suspect]
     Indication: ANTIRETROVIRAL THERAPY
     Dosage: UNK
  7. ABACAVIR [Suspect]
     Indication: ANTIRETROVIRAL THERAPY
     Dosage: UNK
  8. EFAVIRENZ [Suspect]
     Indication: ANTIRETROVIRAL THERAPY
     Dosage: UNK
  9. SIROLIMUS [Suspect]
     Indication: PROPHYLAXIS AGAINST TRANSPLANT REJECTION
     Dosage: UNK
  10. MYCOPHENOLATE MOFETIL [Suspect]
     Indication: PROPHYLAXIS AGAINST TRANSPLANT REJECTION
     Dosage: UNK

REACTIONS (8)
  - ACUTE HEPATIC FAILURE [None]
  - BLOOD IMMUNOGLOBULIN E INCREASED [None]
  - CACHEXIA [None]
  - HYPERLIPIDAEMIA [None]
  - HYPERTENSION [None]
  - MYOPATHY [None]
  - RASH [None]
  - RENAL IMPAIRMENT [None]
